FAERS Safety Report 9177730 (Version 1)
Quarter: 2012Q4

REPORT INFORMATION
  Report Type: 
  Country: US (occurrence: US)
  Receive Date: 20121008
  Receipt Date: 20121008
  Transmission Date: 20130627
  Serious: Yes (Other)
  Sender: FDA-Public Use
  Company Number: US-RB-045017-12

PATIENT
  Age: 24 Month
  Sex: Female

DRUGS (1)
  1. MUCINEX CHILDREN^S LIQUID [Suspect]
     Indication: PRODUCT USED FOR UNKNOWN INDICATION
     Dosage: 3 quarters of a teaspoon two times per day for 5 days ( 22-Sep-2012 till 26-Sep-2012).

REACTIONS (2)
  - Haematochezia [Unknown]
  - Accidental exposure to product by child [Unknown]
